FAERS Safety Report 9213172 (Version 4)
Quarter: 2013Q3

REPORT INFORMATION
  Report Type: Report from Study
  Country: JP (occurrence: JP)
  Receive Date: 20130405
  Receipt Date: 20130812
  Transmission Date: 20140515
  Serious: Yes (Death, Hospitalization)
  Sender: FDA-Public Use
  Company Number: JP-JNJFOC-20130307166

PATIENT
  Age: 60 Year
  Sex: Female
  Weight: 52 kg

DRUGS (14)
  1. ONE DURO [Suspect]
     Indication: CANCER PAIN
     Route: 062
     Dates: start: 20130131, end: 20130304
  2. ONE DURO [Suspect]
     Indication: CANCER PAIN
     Route: 062
     Dates: start: 20130129, end: 20130130
  3. ONE DURO [Suspect]
     Indication: CANCER PAIN
     Route: 062
     Dates: start: 20121228, end: 20130128
  4. ONE DURO [Suspect]
     Indication: CANCER PAIN
     Route: 062
     Dates: start: 20121225, end: 20121227
  5. LYRICA [Suspect]
     Indication: CANCER PAIN
     Route: 048
     Dates: start: 20130223, end: 20130301
  6. LYRICA [Suspect]
     Indication: CANCER PAIN
     Route: 048
     Dates: end: 20130222
  7. OXINORM (OXYCODONE HYDROCHLORIDE) [Suspect]
     Indication: CANCER PAIN
     Route: 048
     Dates: start: 20121225, end: 20130104
  8. OXINORM (OXYCODONE HYDROCHLORIDE) [Suspect]
     Indication: CANCER PAIN
     Route: 048
     Dates: start: 20130105, end: 20130107
  9. OXINORM (OXYCODONE HYDROCHLORIDE) [Suspect]
     Indication: CANCER PAIN
     Dosage: RESCUE DOSE
     Route: 048
     Dates: start: 20121224, end: 20121224
  10. CALONAL [Concomitant]
     Indication: CANCER PAIN
     Route: 048
     Dates: end: 20130128
  11. RIFERON [Concomitant]
     Indication: CANCER PAIN
     Route: 062
     Dates: start: 20130128, end: 20130304
  12. PARIET [Concomitant]
     Indication: PROPHYLAXIS
     Route: 048
     Dates: start: 20130129, end: 20130301
  13. MAGMITT [Concomitant]
     Indication: CONSTIPATION
     Route: 048
     Dates: end: 20130205
  14. BARACLUDE [Concomitant]
     Indication: CHRONIC HEPATITIS B
     Route: 048
     Dates: end: 20130304

REACTIONS (11)
  - Uterine cancer [Fatal]
  - Ascites [Not Recovered/Not Resolved]
  - Decreased appetite [Recovering/Resolving]
  - Back pain [Recovering/Resolving]
  - Musculoskeletal pain [Recovering/Resolving]
  - Pain in extremity [Recovering/Resolving]
  - Oedema peripheral [Recovering/Resolving]
  - Hyperkalaemia [Recovering/Resolving]
  - Constipation [Recovering/Resolving]
  - Insomnia [Recovering/Resolving]
  - Urinary tract infection [Recovering/Resolving]
